FAERS Safety Report 19209125 (Version 3)
Quarter: 2022Q4

REPORT INFORMATION
  Report Type: Spontaneous
  Country: FI (occurrence: FI)
  Receive Date: 20210503
  Receipt Date: 20221031
  Transmission Date: 20230113
  Serious: Yes (Disabling, Other)
  Sender: FDA-Public Use
  Company Number: None

PATIENT
  Age: 50 Year
  Sex: Female

DRUGS (7)
  1. TALTZ [Suspect]
     Active Substance: IXEKIZUMAB
     Indication: Psoriatic arthropathy
     Dosage: 80 MG, UNKNOWN
     Route: 058
     Dates: start: 20190607, end: 20190801
  2. DICLOFENAC SODIUM [Concomitant]
     Active Substance: DICLOFENAC SODIUM
     Indication: Arthralgia
     Dosage: UNK, PRN
     Route: 048
  3. GASTERIX [Concomitant]
     Indication: Prophylaxis against gastrointestinal ulcer
     Dosage: 30 MG, DAILY
     Route: 048
  4. LEVOTHYROXINE [Concomitant]
     Active Substance: LEVOTHYROXINE
     Indication: Hypothyroidism
     Dosage: 150 UG, DAILY
     Route: 048
     Dates: start: 1998
  5. CARBOMER [Concomitant]
     Active Substance: CARBOMER
     Indication: Dry eye
     Dosage: UNK, PRN
     Route: 047
  6. CALCICHEW D3 STRONG SITRUUNA [Concomitant]
     Indication: Osteoporosis
     Dosage: 2 DOSAGE FORM, DAILY
     Route: 048
  7. POVIDONE [Concomitant]
     Active Substance: POVIDONE
     Indication: Dry eye
     Dosage: UNK, PRN
     Route: 047

REACTIONS (7)
  - Hyperthyroidism [Not Recovered/Not Resolved]
  - Aphthous ulcer [Not Recovered/Not Resolved]
  - Pyrexia [Not Recovered/Not Resolved]
  - Diarrhoea [Not Recovered/Not Resolved]
  - Neck pain [Unknown]
  - Crohn^s disease [Not Recovered/Not Resolved]
  - Chronic sinusitis [Recovered/Resolved with Sequelae]

NARRATIVE: CASE EVENT DATE: 20190701
